FAERS Safety Report 8474336-1 (Version None)
Quarter: 2012Q2

REPORT INFORMATION
  Report Type: 
  Country: None (occurrence: None)
  Receive Date: 20120628
  Receipt Date: 20120620
  Transmission Date: 20120825
  Serious: No
  Sender: FDA-Public Use
  Company Number: US-UCBSA-018283

PATIENT
  Age: 26 Year
  Sex: Male
  Weight: 108 kg

DRUGS (23)
  1. FLAGYL [Concomitant]
     Indication: CROHN'S DISEASE
     Dates: start: 20010101, end: 20010801
  2. FOLIC ACID [Concomitant]
  3. ACETAMINOPHEN [Concomitant]
  4. CIMZIA [Suspect]
     Route: 058
     Dates: start: 20100604, end: 20100702
  5. CIMZIA [Suspect]
     Route: 058
     Dates: start: 20100408, end: 20100508
  6. METHOTREXATE [Suspect]
     Indication: CROHN'S DISEASE
     Dates: start: 20100803, end: 20100824
  7. MULTI-VITAMINS [Concomitant]
  8. IMODIUM [Concomitant]
  9. ACETAMINOPHEN [Concomitant]
     Dosage: 2 TABLETS PRN
  10. VITAMIN D [Concomitant]
  11. CO Q [Concomitant]
     Indication: ROUTINE HEALTH MAINTENANCE
     Dosage: 10 (UNITS UNSPECIFIED)
     Dates: start: 20090901
  12. ASCORBIC ACID [Concomitant]
  13. FLAGYL [Concomitant]
     Dates: start: 20091001, end: 20091101
  14. CIPROFLOXACIN HCL [Concomitant]
     Indication: CROHN'S DISEASE
     Dates: start: 20091001, end: 20091125
  15. COUMADIN [Concomitant]
     Route: 048
  16. PREDNISONE TAB [Suspect]
     Indication: CROHN'S DISEASE
     Dates: start: 20100626
  17. CIPROFLOXACIN HCL [Concomitant]
     Dates: start: 20100626
  18. CIMZIA [Suspect]
     Indication: CROHN'S DISEASE
     Route: 058
     Dates: start: 20100723
  19. FLAGYL [Concomitant]
     Dates: start: 20100626
  20. VITAMIN B-12 [Concomitant]
  21. IRON [Concomitant]
  22. ZYRTEC [Concomitant]
  23. CALCIUM + VIT D [Concomitant]
     Indication: NEPHROLITHIASIS
     Dosage: 1200-400 MG
     Route: 048
     Dates: start: 20080701

REACTIONS (1)
  - ABSCESS [None]
